FAERS Safety Report 21966985 (Version 1)
Quarter: 2023Q1

REPORT INFORMATION
  Report Type: Spontaneous
  Country: US (occurrence: None)
  Receive Date: 20230206
  Receipt Date: 20230206
  Transmission Date: 20230417
  Serious: Yes (Other)
  Sender: FDA-Public Use
  Company Number: None

PATIENT
  Age: 69 Year
  Sex: Female

DRUGS (3)
  1. HUMIRA [Suspect]
     Active Substance: ADALIMUMAB
     Indication: Rheumatoid arthritis
     Dosage: OTHER FREQUENCY : QOW;?
     Route: 058
     Dates: start: 20220103, end: 20221101
  2. DOXYCYCLINE [Concomitant]
     Active Substance: DOXYCYCLINE
  3. METHOTREXATE [Concomitant]
     Active Substance: METHOTREXATE

REACTIONS (2)
  - Rocky mountain spotted fever [None]
  - Eczema [None]

NARRATIVE: CASE EVENT DATE: 20220601
